FAERS Safety Report 10877335 (Version 2)
Quarter: 2015Q2

REPORT INFORMATION
  Report Type: Report from Study
  Country: BE (occurrence: BE)
  Receive Date: 20150302
  Receipt Date: 20150430
  Transmission Date: 20150821
  Serious: Yes (Hospitalization, Other)
  Sender: FDA-Public Use
  Company Number: PHHY2015BE020414

PATIENT
  Sex: Male

DRUGS (4)
  1. SANDOSTATIN LAR DEPOT [Suspect]
     Active Substance: OCTREOTIDE ACETATE
     Indication: PANCREATIC NEUROENDOCRINE TUMOUR
     Dosage: 30 MG, EVERY 28 DAYS
     Route: 030
     Dates: start: 201208
  2. AFINITOR [Suspect]
     Active Substance: EVEROLIMUS
     Indication: PANCREATIC NEUROENDOCRINE TUMOUR
     Dosage: 10 MG, QD
     Route: 048
     Dates: start: 201403, end: 201406
  3. AFINITOR [Suspect]
     Active Substance: EVEROLIMUS
     Dosage: 10 MG, QD
     Route: 048
     Dates: start: 201406, end: 201502
  4. AFINITOR [Suspect]
     Active Substance: EVEROLIMUS
     Dosage: 5 MG, QD
     Route: 048
     Dates: start: 20150302

REACTIONS (13)
  - Decreased appetite [Recovering/Resolving]
  - Gastric antral vascular ectasia [Recovering/Resolving]
  - Stomatitis [Recovered/Resolved]
  - Duodenitis [Recovering/Resolving]
  - Iron deficiency anaemia [Recovering/Resolving]
  - Malignant neoplasm progression [Unknown]
  - Arthralgia [Unknown]
  - Gastritis [Recovering/Resolving]
  - Abdominal pain [Recovering/Resolving]
  - Abnormal faeces [Recovering/Resolving]
  - Weight decreased [Recovering/Resolving]
  - Diabetes mellitus [Unknown]
  - Diarrhoea [Recovered/Resolved]

NARRATIVE: CASE EVENT DATE: 2013
